FAERS Safety Report 9410335 (Version 5)
Quarter: 2013Q4

REPORT INFORMATION
  Report Type: Spontaneous
  Country: US (occurrence: US)
  Receive Date: 20130719
  Receipt Date: 20131111
  Transmission Date: 20140711
  Serious: Yes (Hospitalization, Other)
  Sender: FDA-Public Use
  Company Number: US-PFIZER INC-2013208623

PATIENT
  Age: 58 Year
  Sex: Male

DRUGS (3)
  1. XALKORI [Suspect]
     Indication: LUNG NEOPLASM MALIGNANT
     Dosage: 250 MG, 2X/DAY
     Route: 048
     Dates: start: 20130628, end: 20130630
  2. XALKORI [Suspect]
     Dosage: 250 MG, 1X/DAY
     Route: 048
     Dates: end: 20131031
  3. XALKORI [Suspect]
     Dosage: 250 MG, 2X/DAY
     Route: 048

REACTIONS (14)
  - Dizziness [Unknown]
  - Vision blurred [Unknown]
  - Fall [Unknown]
  - Headache [Unknown]
  - Mobility decreased [Unknown]
  - Gait disturbance [Unknown]
  - Abdominal pain upper [Unknown]
  - Urinary incontinence [Unknown]
  - Balance disorder [Unknown]
  - Asthenia [Recovered/Resolved]
  - Decreased appetite [Recovered/Resolved]
  - Dizziness postural [Recovering/Resolving]
  - Pollakiuria [Unknown]
  - Fatigue [Unknown]
